FAERS Safety Report 7306570-8 (Version None)
Quarter: 2011Q1

REPORT INFORMATION
  Report Type: 
  Country: None (occurrence: None)
  Receive Date: 20110208
  Receipt Date: 20110131
  Transmission Date: 20110831
  Serious: Yes (Other)
  Sender: FDA-Public Use
  Company Number: 2011020003

PATIENT
  Age: 68 Year
  Sex: Female
  Weight: 73.0291 kg

DRUGS (7)
  1. WATER PILL [Concomitant]
  2. THYROID MEDICATION [Concomitant]
  3. ASTELIN [Suspect]
     Indication: PERENNIAL ALLERGY
     Dosage: 548 MCG (548 MCG, 1 IN 1 D),IN
     Dates: start: 20090101, end: 20100601
  4. OXYGEN (OXYGEN) [Concomitant]
  5. SPIRIVA (TIOTOPRIUM BROMIDE) [Concomitant]
  6. BP MEDICATION [Concomitant]
  7. ADVAIR DISKUS 100/50 [Concomitant]

REACTIONS (2)
  - ECONOMIC PROBLEM [None]
  - CEREBROVASCULAR ACCIDENT [None]
